FAERS Safety Report 5158980-5 (Version None)
Quarter: 2006Q4

REPORT INFORMATION
  Report Type: 
  Country: None (occurrence: None)
  Receive Date: 20061114
  Receipt Date: 20060831
  Transmission Date: 20070319
  Serious: Yes (Other)
  Sender: FDA-Public Use
  Company Number: CHNY2006GB02445

PATIENT
  Age: 45 Year
  Sex: Female

DRUGS (1)
  1. LAMISIL [Suspect]
     Indication: TINEA PEDIS
     Dosage: 1 SINGLE APPLICATION, TOPICAL
     Route: 061
     Dates: start: 20060824, end: 20060824

REACTIONS (8)
  - ADVERSE DRUG REACTION [None]
  - ERYTHEMA [None]
  - OEDEMA PERIPHERAL [None]
  - PRURITUS [None]
  - SEPSIS [None]
  - SKIN INFECTION [None]
  - SKIN IRRITATION [None]
  - SKIN REACTION [None]
